FAERS Safety Report 16337308 (Version 3)
Quarter: 2019Q4

REPORT INFORMATION
  Report Type: Spontaneous
  Country: US (occurrence: US)
  Receive Date: 20190521
  Receipt Date: 20191231
  Transmission Date: 20200122
  Serious: Yes (Other)
  Sender: FDA-Public Use
  Company Number: US-PFIZER INC-2019212983

PATIENT
  Age: 53 Year
  Sex: Male
  Weight: 131.52 kg

DRUGS (2)
  1. LYRICA [Suspect]
     Active Substance: PREGABALIN
     Dosage: 300 MG, 3X/DAY
  2. LYRICA [Suspect]
     Active Substance: PREGABALIN
     Indication: NERVE INJURY
     Dosage: 100 MG, UNK

REACTIONS (9)
  - Drug dependence [Not Recovered/Not Resolved]
  - Intentional product use issue [Recovered/Resolved]
  - Hypoaesthesia [Recovered/Resolved]
  - Prescribed overdose [Recovered/Resolved]
  - Intentional overdose [Unknown]
  - Neuralgia [Not Recovered/Not Resolved]
  - Condition aggravated [Recovered/Resolved]
  - Malaise [Recovered/Resolved]
  - Depressed mood [Unknown]

NARRATIVE: CASE EVENT DATE: 201905
